FAERS Safety Report 15476610 (Version 1)
Quarter: 2018Q4

REPORT INFORMATION
  Report Type: Report from Study
  Country: None (occurrence: RO)
  Receive Date: 20181009
  Receipt Date: 20181009
  Transmission Date: 20190205
  Serious: Yes (Hospitalization)
  Sender: FDA-Public Use
  Company Number: RO-ABBVIE-18S-135-2511578-00

PATIENT
  Age: 78 Year
  Sex: Female

DRUGS (1)
  1. DUODOPA [Suspect]
     Active Substance: CARBIDOPA\LEVODOPA
     Indication: PARKINSON^S DISEASE
     Dosage: MD=5.50??CD=3.20??ED=1.40??NRED=3;
     Route: 050
     Dates: start: 20110826

REACTIONS (2)
  - Stoma site infection [Recovering/Resolving]
  - Peritoneal disorder [Recovering/Resolving]

NARRATIVE: CASE EVENT DATE: 20181002
